FAERS Safety Report 10182550 (Version 3)
Quarter: 2014Q4

REPORT INFORMATION
  Report Type: Spontaneous
  Country: US (occurrence: None)
  Receive Date: 20140516
  Receipt Date: 20141027
  Transmission Date: 20150528
  Serious: Yes (Other)
  Sender: FDA-Public Use
  Company Number: ADR-2014-00825

PATIENT
  Age: 56 Year
  Sex: Female

DRUGS (4)
  1. BACLOFEN INTRATHECAL [Suspect]
     Active Substance: BACLOFEN
     Indication: MUSCLE SPASTICITY
  2. TRIGGER POINT INJECTIONS [Suspect]
     Active Substance: UNSPECIFIED INGREDIENT
  3. LIORESAL [Suspect]
     Active Substance: BACLOFEN
  4. NARCOTICS [Suspect]
     Active Substance: UNSPECIFIED INGREDIENT

REACTIONS (20)
  - Headache [None]
  - Pain [None]
  - Drug effect decreased [None]
  - Sepsis [None]
  - Vomiting [None]
  - Malaise [None]
  - Foreign body [None]
  - Hypotension [None]
  - Unevaluable event [None]
  - Abasia [None]
  - Medical device complication [None]
  - Device deployment issue [None]
  - Faecal incontinence [None]
  - Catheter site swelling [None]
  - Intervertebral disc protrusion [None]
  - Nausea [None]
  - Kidney infection [None]
  - Frustration [None]
  - Muscle spasms [None]
  - Cerebrospinal fluid leakage [None]
